FAERS Safety Report 10391144 (Version 2)
Quarter: 2014Q3

REPORT INFORMATION
  Report Type: Report from Study
  Country: CA (occurrence: CA)
  Receive Date: 20140818
  Receipt Date: 20140912
  Transmission Date: 20150326
  Serious: Yes (Other)
  Sender: FDA-Public Use
  Company Number: CA-BRISTOL-MYERS SQUIBB COMPANY-21309430

PATIENT
  Age: 74 Year
  Sex: Female

DRUGS (6)
  1. ORENCIA [Suspect]
     Active Substance: ABATACEPT
     Indication: RHEUMATOID ARTHRITIS
     Route: 042
     Dates: start: 20140304
  2. LATANOPROST + TIMOLOL MALEATE [Concomitant]
  3. FOSAMAX [Concomitant]
     Active Substance: ALENDRONATE SODIUM
  4. OXYCODONE [Concomitant]
     Active Substance: OXYCODONE
  5. LANSOPRAZOLE. [Concomitant]
     Active Substance: LANSOPRAZOLE
  6. CANDESARTAN [Concomitant]
     Active Substance: CANDESARTAN

REACTIONS (2)
  - Drug ineffective [Unknown]
  - Arrhythmia [Unknown]

NARRATIVE: CASE EVENT DATE: 201407
